FAERS Safety Report 14276966 (Version 2)
Quarter: 2018Q1

REPORT INFORMATION
  Report Type: Report from Study
  Country: BR (occurrence: BR)
  Receive Date: 20171212
  Receipt Date: 20180104
  Transmission Date: 20180508
  Serious: Yes (Hospitalization, Other)
  Sender: FDA-Public Use
  Company Number: BR-ALEXION-A201707671

PATIENT
  Age: 40 Year
  Sex: Female

DRUGS (2)
  1. SOLIRIS [Suspect]
     Active Substance: ECULIZUMAB
     Dosage: 1200 MG, Q2W
     Route: 042
     Dates: start: 20170124
  2. SOLIRIS [Suspect]
     Active Substance: ECULIZUMAB
     Indication: ATYPICAL HAEMOLYTIC URAEMIC SYNDROME
     Dosage: 900 MG, QW
     Route: 042
     Dates: start: 20161227, end: 20170117

REACTIONS (12)
  - Swelling face [Unknown]
  - Hypotension [Unknown]
  - Aphonia [Recovered/Resolved]
  - Laboratory test abnormal [Unknown]
  - Haematocrit decreased [Unknown]
  - Inappropriate schedule of drug administration [Recovered/Resolved]
  - Poor venous access [Unknown]
  - Blood creatinine increased [Unknown]
  - Malaise [Unknown]
  - Blood urea increased [Unknown]
  - Haemoglobin decreased [Unknown]
  - Red blood cell count decreased [Unknown]

NARRATIVE: CASE EVENT DATE: 20170628
